FAERS Safety Report 10985093 (Version 1)
Quarter: 2015Q2

REPORT INFORMATION
  Report Type: Spontaneous
  Country: FR (occurrence: FR)
  Receive Date: 20150404
  Receipt Date: 20150404
  Transmission Date: 20150821
  Serious: Yes (Hospitalization)
  Sender: FDA-Public Use
  Company Number: FR-MERCK-1503FRA013751

PATIENT
  Age: 77 Year
  Sex: Female

DRUGS (3)
  1. NORSET [Suspect]
     Active Substance: MIRTAZAPINE
     Dosage: UNKNOWN
     Route: 048
  2. LAMALINE [Suspect]
     Active Substance: ACETAMINOPHEN\CAFFEINE\OPIUM
     Indication: NECK PAIN
     Dosage: FREQUENCY 1 DAY
     Dates: start: 20150123, end: 20150123
  3. TRANXENE T-TAB [Suspect]
     Active Substance: CLORAZEPATE DIPOTASSIUM
     Dosage: 10 MG, BID
     Route: 048

REACTIONS (2)
  - Overdose [Recovered/Resolved]
  - Constipation [Unknown]

NARRATIVE: CASE EVENT DATE: 20150123
